FAERS Safety Report 14283060 (Version 3)
Quarter: 2018Q1

REPORT INFORMATION
  Report Type: Spontaneous
  Country: US (occurrence: US)
  Receive Date: 20171213
  Receipt Date: 20180123
  Transmission Date: 20180508
  Serious: Yes (Other)
  Sender: FDA-Public Use
  Company Number: US-LUNDBECK-DKLU2040973

PATIENT
  Age: 67 Year
  Sex: Male

DRUGS (5)
  1. NORTHERA [Suspect]
     Active Substance: DROXIDOPA
     Indication: PARKINSON^S DISEASE
     Dosage: SCHEDULE B AND TITRATING
     Route: 048
     Dates: start: 20171202
  2. SINEMET [Suspect]
     Active Substance: CARBIDOPA\LEVODOPA
     Indication: PRODUCT USED FOR UNKNOWN INDICATION
     Route: 065
  3. MIDODRINE [Concomitant]
     Active Substance: MIDODRINE
     Indication: PRODUCT USED FOR UNKNOWN INDICATION
     Route: 065
  4. NORTHERA [Suspect]
     Active Substance: DROXIDOPA
     Dosage: SCHEDULE C AND TITRATING
     Route: 048
     Dates: start: 20171202
  5. MYRBETRIQ [Suspect]
     Active Substance: MIRABEGRON
     Indication: BLADDER DISORDER
     Route: 065

REACTIONS (9)
  - Blood pressure fluctuation [Unknown]
  - Parkinson^s disease [Unknown]
  - Freezing phenomenon [Unknown]
  - Fall [Unknown]
  - Confusional state [Unknown]
  - Blood pressure decreased [Unknown]
  - Drug dose titration not performed [Unknown]
  - Blood pressure increased [Unknown]
  - Abnormal dreams [Unknown]

NARRATIVE: CASE EVENT DATE: 20171202
